FAERS Safety Report 5124757-X (Version None)
Quarter: 2006Q4

REPORT INFORMATION
  Report Type: 
  Country: None (occurrence: None)
  Receive Date: 20061006
  Receipt Date: 20060927
  Transmission Date: 20070319
  Serious: Yes (Hospitalization)
  Sender: FDA-Public Use
  Company Number: HQWYE398826JUL06

PATIENT
  Age: 70 Year
  Sex: Female

DRUGS (12)
  1. MYLOTARG [Suspect]
     Indication: ACUTE MYELOID LEUKAEMIA RECURRENT
     Dosage: 9 MCG/M^2 1X PER 1 DAY; INTRAVENOUS DRIP, (SEE IMAGE)
     Route: 041
     Dates: start: 20060601, end: 20060601
  2. MYLOTARG [Suspect]
     Indication: ACUTE MYELOID LEUKAEMIA RECURRENT
     Dosage: 9 MCG/M^2 1X PER 1 DAY; INTRAVENOUS DRIP, (SEE IMAGE)
     Route: 041
     Dates: start: 20060615, end: 20060615
  3. NEUPOGEN [Concomitant]
  4. NEUPOGEN [Concomitant]
  5. ITRACONAZOLE [Concomitant]
  6. ALLOPURINOL [Concomitant]
  7. DIOVAN [Concomitant]
  8. INSULIN [Concomitant]
  9. EXACIN (ISEPAMICIN SULFATE) [Concomitant]
  10. EXACIN (ISEPAMICIN SULFATE) [Concomitant]
  11. UNSPECIFIED GROWTH HORMONE [Concomitant]
  12. UNSPECIFIED GROWTH HORMONE [Concomitant]

REACTIONS (13)
  - ALANINE AMINOTRANSFERASE INCREASED [None]
  - ANAEMIA [None]
  - ASPARTATE AMINOTRANSFERASE INCREASED [None]
  - GASTROENTERITIS STAPHYLOCOCCAL [None]
  - MALAISE [None]
  - NEUTROPHIL COUNT DECREASED [None]
  - PLATELET COUNT DECREASED [None]
  - PNEUMONIA [None]
  - PNEUMONIA CYTOMEGALOVIRAL [None]
  - RENAL DISORDER [None]
  - SEPSIS [None]
  - SYSTEMIC CANDIDA [None]
  - WHITE BLOOD CELL COUNT DECREASED [None]
